FAERS Safety Report 8436910-8 (Version None)
Quarter: 2012Q2

REPORT INFORMATION
  Report Type: 
  Country: None (occurrence: None)
  Receive Date: 20120611
  Receipt Date: 20120611
  Transmission Date: 20120825
  Serious: No
  Sender: FDA-Public Use
  Company Number: None

PATIENT
  Age: 46 Year
  Sex: Female
  Weight: 68.0396 kg

DRUGS (2)
  1. CELEBREX [Suspect]
     Indication: PAIN
     Dosage: 1 A DAY
     Dates: start: 20120523, end: 20120526
  2. CELEBREX [Suspect]
     Indication: INTERVERTEBRAL DISC PROTRUSION
     Dosage: 1 A DAY
     Dates: start: 20120523, end: 20120526

REACTIONS (3)
  - CARDIAC FLUTTER [None]
  - DISTURBANCE IN ATTENTION [None]
  - PANIC ATTACK [None]
